FAERS Safety Report 6068319-9 (Version None)
Quarter: 2009Q1

REPORT INFORMATION
  Report Type: 
  Country: None (occurrence: None)
  Receive Date: 20090206
  Receipt Date: 20090205
  Transmission Date: 20090719
  Serious: Yes (Hospitalization)
  Sender: FDA-Public Use
  Company Number: JP-BAYER-200813059BYL

PATIENT
  Age: 74 Year
  Sex: Male
  Weight: 43 kg

DRUGS (4)
  1. ASPIRIN [Suspect]
     Indication: LACUNAR INFARCTION
     Dosage: TOTAL DAILY DOSE: 100 MG  UNIT DOSE: 100 MG
     Route: 048
     Dates: end: 20080718
  2. NORVASC [Concomitant]
     Indication: DRUG USE FOR UNKNOWN INDICATION
     Dosage: TOTAL DAILY DOSE: 5 MG  UNIT DOSE: 5 MG
     Route: 048
  3. BERIZYM [Concomitant]
     Indication: DRUG USE FOR UNKNOWN INDICATION
     Dosage: TOTAL DAILY DOSE: 3 G  UNIT DOSE: 1 G
     Route: 048
  4. TAKEPRON [Concomitant]
     Indication: DRUG USE FOR UNKNOWN INDICATION
     Dosage: TOTAL DAILY DOSE: 30 MG  UNIT DOSE: 30 MG
     Route: 048
     Dates: start: 20080723

REACTIONS (3)
  - ANAEMIA [None]
  - CEREBRAL INFARCTION [None]
  - GASTROINTESTINAL HAEMORRHAGE [None]
